FAERS Safety Report 4744437-X (Version None)
Quarter: 2005Q3

REPORT INFORMATION
  Report Type: 
  Country: None (occurrence: None)
  Receive Date: 20050809
  Receipt Date: 20050728
  Transmission Date: 20060218
  Serious: Yes (Other)
  Sender: FDA-Public Use
  Company Number: 2005086719

PATIENT
  Sex: Male
  Weight: 58.9676 kg

DRUGS (6)
  1. XANAX [Suspect]
     Indication: ILL-DEFINED DISORDER
     Dosage: 2 MG
  2. NEURONTIN [Suspect]
     Indication: ILL-DEFINED DISORDER
     Dosage: 1800 MG (200 MG, 6 IN 1 D)
  3. DESOXYN [Suspect]
     Indication: FATIGUE
     Dosage: 180 MG (30 MG, 6 IN 1 D), ORAL
     Route: 048
  4. DURAGESIC-100 [Suspect]
     Indication: ILL-DEFINED DISORDER
     Dosage: 200 MCG, 1 IN 3 D
  5. PRILOSEC [Suspect]
     Dosage: 40 MG (40 MG, 1 IN 1 D)
  6. OXYCONTIN [Suspect]
     Indication: ILL-DEFINED DISORDER
     Dosage: 480 MG (80 MG, 6 IN 1 D)

REACTIONS (3)
  - FATIGUE [None]
  - LOSS OF CONSCIOUSNESS [None]
  - ROAD TRAFFIC ACCIDENT [None]
